FAERS Safety Report 21547276 (Version 1)
Quarter: 2022Q4

REPORT INFORMATION
  Report Type: Spontaneous
  Country: US (occurrence: None)
  Receive Date: 20221101
  Receipt Date: 20221101
  Transmission Date: 20230112
  Serious: Yes (Hospitalization)
  Sender: FDA-Public Use
  Company Number: None

PATIENT

DRUGS (2)
  1. SACUBITRIL\VALSARTAN [Suspect]
     Active Substance: SACUBITRIL\VALSARTAN
  2. SPIRONOLACTONE [Suspect]
     Active Substance: SPIRONOLACTONE

REACTIONS (3)
  - Hypovolaemia [None]
  - Hyperkalaemia [None]
  - Acute kidney injury [None]

NARRATIVE: CASE EVENT DATE: 20210306
